FAERS Safety Report 5775476-8 (Version None)
Quarter: 2008Q2

REPORT INFORMATION
  Report Type: 
  Country: None (occurrence: None)
  Receive Date: 20080617
  Receipt Date: 20080605
  Transmission Date: 20081010
  Serious: Yes (Other)
  Sender: FDA-Public Use
  Company Number: PHEH2008US05162

PATIENT

DRUGS (2)
  1. EXELON [Suspect]
     Indication: MEMORY IMPAIRMENT
     Dosage: UNK
     Route: 062
  2. NAMENDA [Concomitant]

REACTIONS (3)
  - FIBROMYALGIA [None]
  - HEADACHE [None]
  - INTRAOCULAR PRESSURE INCREASED [None]
